FAERS Safety Report 5179531-5 (Version None)
Quarter: 2006Q4

REPORT INFORMATION
  Report Type: 
  Country: None (occurrence: None)
  Receive Date: 20061219
  Receipt Date: 20061212
  Transmission Date: 20070319
  Serious: Yes (Hospitalization)
  Sender: FDA-Public Use
  Company Number: US-ELI_LILLY_AND_COMPANY-US200612002173

PATIENT
  Age: 49 Year
  Sex: Male

DRUGS (3)
  1. HUMALOG [Suspect]
     Indication: DIABETES MELLITUS
     Dosage: UNK, UNK
     Dates: start: 20020101
  2. LANTUS [Concomitant]
     Indication: DIABETES MELLITUS
     Dosage: 85 U, DAILY (1/D)
  3. ANTIHYPERTENSIVE AGENT [Concomitant]

REACTIONS (5)
  - BLOOD GLUCOSE INCREASED [None]
  - DIZZINESS [None]
  - MALAISE [None]
  - MYOCARDIAL INFARCTION [None]
  - VOMITING [None]
